FAERS Safety Report 17610937 (Version 1)
Quarter: 2020Q2

REPORT INFORMATION
  Report Type: Spontaneous
  Country: IT (occurrence: IT)
  Receive Date: 20200401
  Receipt Date: 20200401
  Transmission Date: 20200713
  Serious: Yes (Hospitalization)
  Sender: FDA-Public Use
  Company Number: IT-MYLANLABS-2020M1034119

PATIENT
  Age: 72 Year
  Sex: Female

DRUGS (2)
  1. FLUOROURACIL. [Suspect]
     Active Substance: FLUOROURACIL
     Indication: ANAL SQUAMOUS CELL CARCINOMA
     Route: 065
  2. MITOMYCIN. [Suspect]
     Active Substance: MITOMYCIN
     Indication: ANAL SQUAMOUS CELL CARCINOMA
     Route: 065

REACTIONS (5)
  - Gastrointestinal necrosis [Recovered/Resolved]
  - Intestinal ischaemia [Recovered/Resolved]
  - Necrosis ischaemic [Recovered/Resolved]
  - Gastric ulcer haemorrhage [Recovered/Resolved]
  - Soft tissue disorder [Recovered/Resolved]
